FAERS Safety Report 5475071-4 (Version None)
Quarter: 2007Q4

REPORT INFORMATION
  Report Type: 
  Country: None (occurrence: None)
  Receive Date: 20071002
  Receipt Date: 20070920
  Transmission Date: 20080405
  Serious: Yes (Death)
  Sender: FDA-Public Use
  Company Number: KR-PFIZER INC-2007069882

PATIENT
  Age: 72 Year
  Sex: Male

DRUGS (1)
  1. DOXYCYCLINE [Suspect]
     Indication: SCRUB TYPHUS
     Dosage: DAILY DOSE:200MG
     Route: 048

REACTIONS (1)
  - SUBDURAL HAEMATOMA [None]
